FAERS Safety Report 9939731 (Version 1)
Quarter: 2014Q1

REPORT INFORMATION
  Report Type: Spontaneous
  Country: US (occurrence: US)
  Receive Date: 20140303
  Receipt Date: 20140303
  Transmission Date: 20141002
  Serious: Yes (Other)
  Sender: FDA-Public Use
  Company Number: US-ABBVIE-13P-163-1034738-00

PATIENT
  Age: 65 Year
  Sex: Male
  Weight: 99.88 kg

DRUGS (6)
  1. HUMIRA [Suspect]
     Indication: CROHN^S DISEASE
     Dates: start: 201211
  2. LIPITOR [Concomitant]
     Indication: BLOOD CHOLESTEROL
  3. ALLOPURINOL [Concomitant]
     Indication: GOUT
  4. PROZAC [Concomitant]
     Indication: ANXIETY
  5. HYDROXYZINE [Concomitant]
     Indication: HYPERSENSITIVITY
  6. FISH OIL [Concomitant]
     Indication: BLOOD TRIGLYCERIDES

REACTIONS (1)
  - Rotator cuff repair [Unknown]
